FAERS Safety Report 16655726 (Version 1)
Quarter: 2019Q3

REPORT INFORMATION
  Report Type: Spontaneous
  Country: GB (occurrence: GB)
  Receive Date: 20190801
  Receipt Date: 20190801
  Transmission Date: 20191004
  Serious: Yes (Hospitalization)
  Sender: FDA-Public Use
  Company Number: GB-ACCORD-149731

PATIENT
  Age: 72 Year
  Sex: Male

DRUGS (11)
  1. OXYBUTYNIN. [Concomitant]
     Active Substance: OXYBUTYNIN CHLORIDE
  2. ACETYLSALICYLIC ACID [Concomitant]
     Active Substance: ASPIRIN
  3. HUMALOG [Concomitant]
     Active Substance: INSULIN LISPRO
     Indication: DIABETES MELLITUS
  4. RAMIPRIL. [Suspect]
     Active Substance: RAMIPRIL
     Indication: HYPERTENSION
     Route: 048
     Dates: start: 20190628, end: 20190701
  5. ATORVASTATIN [Concomitant]
     Active Substance: ATORVASTATIN
  6. ISOSORBIDE. [Concomitant]
     Active Substance: ISOSORBIDE
  7. BISOPROLOL [Concomitant]
     Active Substance: BISOPROLOL
  8. RANOLAZINE/RANOLAZINE HYDROCHLORIDE [Concomitant]
  9. GABAPENTIN. [Concomitant]
     Active Substance: GABAPENTIN
  10. DULOXETINE. [Concomitant]
     Active Substance: DULOXETINE
  11. LANSOPRAZOLE. [Concomitant]
     Active Substance: LANSOPRAZOLE

REACTIONS (2)
  - Syncope [Recovered/Resolved]
  - Chest pain [Unknown]

NARRATIVE: CASE EVENT DATE: 20190628
